FAERS Safety Report 11299507 (Version 1)
Quarter: 2015Q3

REPORT INFORMATION
  Report Type: Spontaneous
  Country: US (occurrence: US)
  Receive Date: 20150722
  Receipt Date: 20150722
  Transmission Date: 20151125
  Serious: No
  Sender: FDA-Public Use
  Company Number: US-ELI_LILLY_AND_COMPANY-US201212006578

PATIENT
  Age: 58 Year
  Sex: Female

DRUGS (1)
  1. HUMATROPE [Suspect]
     Active Substance: SOMATROPIN
     Indication: ADRENAL INSUFFICIENCY
     Dosage: 0.7 MG, QD

REACTIONS (5)
  - Malaise [Unknown]
  - Abdominal pain upper [Unknown]
  - Alopecia [Unknown]
  - Lethargy [Unknown]
  - Skin lesion [Unknown]

NARRATIVE: CASE EVENT DATE: 20121213
